FAERS Safety Report 9586381 (Version 3)
Quarter: 2013Q4

REPORT INFORMATION
  Report Type: Report from Study
  Country: DE (occurrence: DE)
  Receive Date: 20131003
  Receipt Date: 20131015
  Transmission Date: 20140711
  Serious: Yes (Hospitalization)
  Sender: FDA-Public Use
  Company Number: PHHO2013DE012339

PATIENT
  Sex: 0

DRUGS (4)
  1. FTY [Suspect]
     Indication: RELAPSING-REMITTING MULTIPLE SCLEROSIS
     Dosage: 0.5 MG, QD
     Route: 048
     Dates: start: 20130903, end: 20130920
  2. MAITALON [Concomitant]
     Indication: CONTRACEPTION
     Dosage: QD
     Dates: start: 201308
  3. VIT D3 [Concomitant]
     Indication: SUPPLEMENTATION THERAPY
     Dosage: QD
  4. ACETYLCYSTEIN [Concomitant]
     Dosage: 600 MG, QD
     Dates: start: 20130919

REACTIONS (1)
  - Somatoform disorder [Recovered/Resolved]
